FAERS Safety Report 23152066 (Version 1)
Quarter: 2023Q4

REPORT INFORMATION
  Report Type: Other
  Country: US (occurrence: None)
  Receive Date: 20231107
  Receipt Date: 20231107
  Transmission Date: 20240109
  Serious: Yes (Other)
  Sender: FDA-Public Use
  Company Number: US-ROCHE-3408169

PATIENT
  Age: 41 Year
  Sex: Male

DRUGS (22)
  1. AVASTIN [Suspect]
     Active Substance: BEVACIZUMAB
     Indication: Retinal neovascularisation
     Dosage: RECEIVED IN RIGHT EYE
     Route: 050
     Dates: start: 202301, end: 202301
  2. AVASTIN [Suspect]
     Active Substance: BEVACIZUMAB
     Indication: Choroidal neovascularisation
     Dosage: RECEIVED IN RIGHT EYE
     Route: 050
     Dates: start: 2012, end: 202209
  3. AVASTIN [Suspect]
     Active Substance: BEVACIZUMAB
     Indication: Neovascular age-related macular degeneration
  4. AVASTIN [Suspect]
     Active Substance: BEVACIZUMAB
     Indication: Vitreous degeneration
  5. AVASTIN [Suspect]
     Active Substance: BEVACIZUMAB
     Indication: Presumed ocular histoplasmosis syndrome
  6. LUCENTIS [Suspect]
     Active Substance: RANIBIZUMAB
     Indication: Retinal neovascularisation
     Route: 050
     Dates: start: 202212, end: 202212
  7. LUCENTIS [Suspect]
     Active Substance: RANIBIZUMAB
     Indication: Choroidal neovascularisation
  8. LUCENTIS [Suspect]
     Active Substance: RANIBIZUMAB
     Indication: Neovascular age-related macular degeneration
  9. LUCENTIS [Suspect]
     Active Substance: RANIBIZUMAB
     Indication: Vitreous degeneration
  10. LUCENTIS [Suspect]
     Active Substance: RANIBIZUMAB
     Indication: Presumed ocular histoplasmosis syndrome
  11. EYLEA [Suspect]
     Active Substance: AFLIBERCEPT
     Indication: Choroidal neovascularisation
     Route: 050
     Dates: start: 202302
  12. EYLEA [Suspect]
     Active Substance: AFLIBERCEPT
     Indication: Retinal neovascularisation
  13. EYLEA [Suspect]
     Active Substance: AFLIBERCEPT
     Indication: Neovascular age-related macular degeneration
  14. EYLEA [Suspect]
     Active Substance: AFLIBERCEPT
     Indication: Vitreous degeneration
  15. EYLEA [Suspect]
     Active Substance: AFLIBERCEPT
     Indication: Presumed ocular histoplasmosis syndrome
  16. BEOVU [Suspect]
     Active Substance: BROLUCIZUMAB-DBLL
     Indication: Neovascular age-related macular degeneration
     Dosage: RECEIVED IN RIGHT EYE
     Route: 050
  17. BEOVU [Suspect]
     Active Substance: BROLUCIZUMAB-DBLL
     Indication: Retinal neovascularisation
  18. BEOVU [Suspect]
     Active Substance: BROLUCIZUMAB-DBLL
     Indication: Vitreous degeneration
  19. BEOVU [Suspect]
     Active Substance: BROLUCIZUMAB-DBLL
     Indication: Choroidal neovascularisation
  20. BEOVU [Suspect]
     Active Substance: BROLUCIZUMAB-DBLL
     Indication: Presumed ocular histoplasmosis syndrome
  21. VABYSMO [Suspect]
     Active Substance: FARICIMAB\FARICIMAB-SVOA
     Indication: Neovascular age-related macular degeneration
     Route: 065
  22. VABYSMO [Suspect]
     Active Substance: FARICIMAB\FARICIMAB-SVOA
     Indication: Choroidal neovascularisation

REACTIONS (9)
  - Drug ineffective [Unknown]
  - Visual acuity reduced [Not Recovered/Not Resolved]
  - Blindness [Not Recovered/Not Resolved]
  - Off label use [Unknown]
  - Eye pain [Not Recovered/Not Resolved]
  - Headache [Recovered/Resolved]
  - Abdominal pain lower [Recovered/Resolved]
  - Tendonitis [Recovered/Resolved]
  - Muscular weakness [Recovered/Resolved]

NARRATIVE: CASE EVENT DATE: 20120101
